FAERS Safety Report 21705161 (Version 2)
Quarter: 2023Q1

REPORT INFORMATION
  Report Type: Other
  Country: PE (occurrence: PE)
  Receive Date: 20221209
  Receipt Date: 20230102
  Transmission Date: 20230417
  Serious: Yes (Other)
  Sender: FDA-Public Use
  Company Number: PE-002147023-NVSC2022PE238566

PATIENT
  Age: 64 Year
  Sex: Female

DRUGS (3)
  1. XOLAIR [Suspect]
     Active Substance: OMALIZUMAB
     Indication: Asthma
     Dosage: 150 MG, QMO
     Route: 058
     Dates: start: 2018
  2. XOLAIR [Suspect]
     Active Substance: OMALIZUMAB
     Dosage: 150 MG, QMO
     Route: 058
     Dates: start: 202209
  3. XOLAIR [Suspect]
     Active Substance: OMALIZUMAB
     Indication: Asthma
     Route: 065
     Dates: start: 202208

REACTIONS (4)
  - Pneumonia [Unknown]
  - Gastritis [Unknown]
  - Hypersensitivity [Not Recovered/Not Resolved]
  - Cough [Not Recovered/Not Resolved]

NARRATIVE: CASE EVENT DATE: 20220801
